FAERS Safety Report 14462475 (Version 1)
Quarter: 2018Q1

REPORT INFORMATION
  Report Type: Other
  Country: US (occurrence: US)
  Receive Date: 20180130
  Receipt Date: 20180130
  Transmission Date: 20180509
  Serious: No
  Sender: FDA-Public Use
  Company Number: US-ACORDA-ACO_144482_2017

PATIENT
  Age: 52 Year
  Sex: Male

DRUGS (10)
  1. AMPYRA [Suspect]
     Active Substance: DALFAMPRIDINE
     Indication: FALL
  2. AMPYRA [Suspect]
     Active Substance: DALFAMPRIDINE
     Indication: BACK PAIN
  3. AUBAGIO [Concomitant]
     Active Substance: TERIFLUNOMIDE
     Indication: PRODUCT USED FOR UNKNOWN INDICATION
     Dosage: UNK
     Route: 065
  4. OCREVUS [Concomitant]
     Active Substance: OCRELIZUMAB
     Indication: PRODUCT USED FOR UNKNOWN INDICATION
  5. AMPYRA [Suspect]
     Active Substance: DALFAMPRIDINE
     Indication: ASTHENIA
  6. TECFIDERA [Suspect]
     Active Substance: DIMETHYL FUMARATE
     Dosage: 240 MG, BID (2 FOR 1 DAY)
     Route: 048
     Dates: start: 20150627, end: 20171101
  7. AMPYRA [Suspect]
     Active Substance: DALFAMPRIDINE
     Indication: MULTIPLE SCLEROSIS
  8. AMPYRA [Suspect]
     Active Substance: DALFAMPRIDINE
     Indication: GAIT DISTURBANCE
     Dosage: 10 MG, BID
     Route: 048
     Dates: start: 20101014
  9. AMPYRA [Suspect]
     Active Substance: DALFAMPRIDINE
     Indication: FATIGUE
  10. TECFIDERA [Suspect]
     Active Substance: DIMETHYL FUMARATE
     Indication: MULTIPLE SCLEROSIS
     Dosage: 120 MG, BID (2 FOR 1 DAY)
     Route: 048
     Dates: start: 20150620, end: 20150627

REACTIONS (16)
  - Pain in extremity [Unknown]
  - Hyperreflexia [Unknown]
  - Back pain [Unknown]
  - Muscular weakness [Unknown]
  - Skin ulcer [Unknown]
  - Constipation [Unknown]
  - Extensor plantar response [Unknown]
  - Asthenia [Unknown]
  - Multiple sclerosis relapse [Unknown]
  - Paraparesis [Unknown]
  - Muscle spasticity [Unknown]
  - Multiple sclerosis [Unknown]
  - Off label use [Unknown]
  - Fall [Unknown]
  - Nerve injury [Unknown]
  - Fatigue [Unknown]

NARRATIVE: CASE EVENT DATE: 20131101
